FAERS Safety Report 9738766 (Version 1)
Quarter: 2013Q4

REPORT INFORMATION
  Report Type: Report from Study
  Country: JP (occurrence: JP)
  Receive Date: 20131209
  Receipt Date: 20131209
  Transmission Date: 20140711
  Serious: No
  Sender: FDA-Public Use
  Company Number: JP-JNJFOC-20131201500

PATIENT
  Age: 66 Year
  Sex: Male
  Weight: 73 kg

DRUGS (11)
  1. STELARA [Suspect]
     Indication: PSORIASIS
     Route: 058
     Dates: start: 20130327
  2. STELARA [Suspect]
     Indication: PSORIASIS
     Route: 058
     Dates: start: 20121226, end: 20121226
  3. STELARA [Suspect]
     Indication: PSORIASIS
     Route: 058
     Dates: start: 20120905, end: 20120905
  4. STELARA [Suspect]
     Indication: PSORIASIS
     Route: 058
     Dates: start: 20120620, end: 20120620
  5. STELARA [Suspect]
     Indication: PSORIASIS
     Route: 058
     Dates: start: 20120321, end: 20120321
  6. STELARA [Suspect]
     Indication: PSORIASIS
     Route: 058
     Dates: start: 20120215, end: 20120215
  7. OXAROL [Concomitant]
     Indication: PSORIASIS
     Route: 061
     Dates: end: 20120905
  8. METHADERM [Concomitant]
     Indication: PSORIASIS
     Route: 061
     Dates: end: 20120905
  9. TACALCITOL [Concomitant]
     Indication: PSORIASIS
     Route: 061
     Dates: end: 20120905
  10. MYSER [Concomitant]
     Indication: PSORIASIS
     Route: 061
     Dates: end: 20120905
  11. ACUATIM [Concomitant]
     Indication: PSORIASIS
     Route: 061
     Dates: start: 20120425

REACTIONS (1)
  - Hepatic function abnormal [Not Recovered/Not Resolved]
